FAERS Safety Report 4644500-8 (Version None)
Quarter: 2005Q2

REPORT INFORMATION
  Report Type: 
  Country: None (occurrence: None)
  Receive Date: 20050422
  Receipt Date: 20050414
  Transmission Date: 20051028
  Serious: No
  Sender: FDA-Public Use
  Company Number: 05H-161-0297506-00

PATIENT
  Age: 58 Year
  Sex: Female

DRUGS (3)
  1. METRONIDAZOLE [Suspect]
     Indication: CELLULITIS
     Dosage: 4 DAYSAFTER CATHETER
  2. VANCOMYCIN [Concomitant]
  3. CEFEPIME [Concomitant]

REACTIONS (4)
  - CEREBELLAR SYNDROME [None]
  - NEUROTOXICITY [None]
  - SPEECH DISORDER [None]
  - TREMOR [None]
